FAERS Safety Report 13488962 (Version 1)
Quarter: 2017Q2

REPORT INFORMATION
  Report Type: Spontaneous
  Country: US (occurrence: US)
  Receive Date: 20170426
  Receipt Date: 20170426
  Transmission Date: 20170830
  Serious: No
  Sender: FDA-Public Use
  Company Number: None

PATIENT
  Age: 50 Year
  Sex: Male
  Weight: 67.5 kg

DRUGS (1)
  1. BUPIVACAINE SPINAL [Suspect]
     Active Substance: BUPIVACAINE
     Indication: SURGERY
     Route: 024
     Dates: start: 20170426, end: 20170426

REACTIONS (2)
  - Product measured potency issue [None]
  - Drug ineffective [None]

NARRATIVE: CASE EVENT DATE: 20170426
